FAERS Safety Report 10306176 (Version 1)
Quarter: 2014Q3

REPORT INFORMATION
  Report Type: Report from Study
  Country: US (occurrence: US)
  Receive Date: 20140715
  Receipt Date: 20140715
  Transmission Date: 20150326
  Serious: Yes (Hospitalization, Other)
  Sender: FDA-Public Use
  Company Number: US-BRISTOL-MYERS SQUIBB COMPANY-21166582

PATIENT
  Age: 75 Year
  Sex: Male
  Weight: 78.46 kg

DRUGS (10)
  1. THYMOGLOBULIN [Suspect]
     Active Substance: LAPINE T-LYMPHOCYTE IMMUNE GLOBULIN
     Indication: RENAL TRANSPLANT
     Route: 042
  2. PERCOCET [Concomitant]
     Active Substance: ACETAMINOPHEN\OXYCODONE HYDROCHLORIDE
     Dosage: 1DF: 5/325 1-2 TABS
     Route: 048
  3. FOSCARNET [Suspect]
     Active Substance: FOSCARNET
     Route: 042
     Dates: start: 20140505
  4. COLACE [Concomitant]
     Active Substance: DOCUSATE SODIUM
     Route: 048
  5. CELLCEPT [Suspect]
     Active Substance: MYCOPHENOLATE MOFETIL\MYCOPHENOLATE MOFETIL HYDROCHLORIDE
     Indication: RENAL TRANSPLANT
  6. NORVASC [Concomitant]
     Active Substance: AMLODIPINE BESYLATE
     Route: 048
  7. VITAMIN D [Concomitant]
     Active Substance: CHOLECALCIFEROL
     Dosage: 1DF: 10000 UNIT NOS
     Route: 048
  8. LASIX [Concomitant]
     Active Substance: FUROSEMIDE
     Route: 048
  9. BELATACEPT [Suspect]
     Active Substance: BELATACEPT
     Indication: RENAL TRANSPLANT
     Dosage: STRENGTH:10MG/KG LAST DOSE:9JUL13?STRENGTH:5MG/KG-375MGFROM 10APR13 LAST DOSE:15MAY14
     Route: 042
     Dates: start: 20121223
  10. COREG [Concomitant]
     Active Substance: CARVEDILOL
     Route: 048

REACTIONS (6)
  - Hypokalaemia [Unknown]
  - Cytomegalovirus viraemia [Recovering/Resolving]
  - Hypomagnesaemia [Unknown]
  - BK virus infection [Unknown]
  - Renal failure acute [Unknown]
  - Atelectasis [Unknown]

NARRATIVE: CASE EVENT DATE: 2014
